FAERS Safety Report 18760397 (Version 1)
Quarter: 2021Q1

REPORT INFORMATION
  Report Type: Spontaneous
  Country: JP (occurrence: JP)
  Receive Date: 20210120
  Receipt Date: 20210120
  Transmission Date: 20210419
  Serious: Yes (Death)
  Sender: FDA-Public Use
  Company Number: JP-UCBSA-2020054600

PATIENT
  Age: 77 Year
  Sex: Male

DRUGS (2)
  1. E KEPPRA [Suspect]
     Active Substance: LEVETIRACETAM
     Dosage: INCREASED DOSE
     Route: 048
  2. E KEPPRA [Suspect]
     Active Substance: LEVETIRACETAM
     Indication: EPILEPSY
     Dosage: 1000 MILLIGRAM, 2X/DAY (BID)
     Route: 048

REACTIONS (4)
  - Hepatic encephalopathy [Fatal]
  - Hyperammonaemia [Fatal]
  - Hepatic cirrhosis [Fatal]
  - Myoclonus [Unknown]

NARRATIVE: CASE EVENT DATE: 20201216
